FAERS Safety Report 10948317 (Version 1)
Quarter: 2015Q1

REPORT INFORMATION
  Report Type: Spontaneous
  Country: US (occurrence: None)
  Receive Date: 20150323
  Receipt Date: 20150323
  Transmission Date: 20150721
  Serious: Yes (Life-Threatening)
  Sender: FDA-Public Use
  Company Number: None

PATIENT
  Age: 2 Day
  Sex: Male
  Weight: 2.2 kg

DRUGS (7)
  1. CHOLECALCIFEROL [Concomitant]
     Active Substance: CHOLECALCIFEROL
  2. TPN/INTRALIPID [Concomitant]
  3. IV FLUIDS [Concomitant]
     Active Substance: UNSPECIFIED INGREDIENT
  4. AMPICILLIN [Concomitant]
     Active Substance: AMPICILLIN
  5. MORPHINE [Suspect]
     Active Substance: MORPHINE
     Indication: PAIN
     Route: 042
     Dates: start: 20140922
  6. GENTAMICIN. [Concomitant]
     Active Substance: GENTAMICIN
  7. AMINOPHYLLINE [Concomitant]
     Active Substance: AMINOPHYLLINE

REACTIONS (1)
  - Apnoea [None]

NARRATIVE: CASE EVENT DATE: 20140922
